FAERS Safety Report 9370386 (Version 2)
Quarter: 2013Q4

REPORT INFORMATION
  Report Type: Spontaneous
  Country: FR (occurrence: FR)
  Receive Date: 20130626
  Receipt Date: 20131114
  Transmission Date: 20140711
  Serious: Yes (Death, Hospitalization)
  Sender: FDA-Public Use
  Company Number: FR-PFIZER INC-2013184322

PATIENT
  Age: 72 Year
  Sex: Female

DRUGS (7)
  1. AROMASINE [Suspect]
     Indication: BREAST CANCER METASTATIC
     Dosage: 25 MG, 1X/DAY
     Route: 048
     Dates: start: 20120412, end: 20130522
  2. AFINITOR [Suspect]
     Indication: BREAST CANCER METASTATIC
     Dosage: 5 MG, 1X/DAY
     Route: 048
     Dates: start: 20130518, end: 20130522
  3. CYMBALTA [Suspect]
     Indication: DEPRESSION
     Dosage: 30 MG, 1X/DAY
     Route: 048
     Dates: start: 201210
  4. CYMBALTA [Suspect]
     Dosage: 60 MG, 1X/DAY
     Route: 048
     Dates: start: 201305
  5. BISOCE [Concomitant]
     Dosage: 5 MG, 1X/DAY
     Dates: start: 2012
  6. OXYCONTIN LP [Concomitant]
     Dosage: 20 MG, 2X/DAY
     Dates: start: 2012
  7. EUPANTOL [Concomitant]
     Dosage: 20 MG, 1X/DAY
     Dates: start: 2012

REACTIONS (4)
  - Disease progression [Fatal]
  - Breast cancer [Fatal]
  - Hepatic failure [Unknown]
  - Blood phosphorus decreased [Unknown]
